FAERS Safety Report 9753204 (Version 2)
Quarter: 2015Q3

REPORT INFORMATION
  Report Type: Spontaneous
  Country: US (occurrence: US)
  Receive Date: 20131213
  Receipt Date: 20150805
  Transmission Date: 20151125
  Serious: No
  Sender: FDA-Public Use
  Company Number: US-GILEAD-2010-0027312

PATIENT
  Age: 73 Year
  Sex: Female
  Weight: 65.77 kg

DRUGS (10)
  1. OXYCODONE [Concomitant]
     Active Substance: OXYCODONE
  2. LANTUS [Concomitant]
     Active Substance: INSULIN GLARGINE
  3. LASIX [Concomitant]
     Active Substance: FUROSEMIDE
  4. SPIRONOLACTONE. [Concomitant]
     Active Substance: SPIRONOLACTONE
  5. NIFEDIPINE. [Concomitant]
     Active Substance: NIFEDIPINE
  6. ZAROXOLYN [Concomitant]
     Active Substance: METOLAZONE
  7. HUMALOG [Concomitant]
     Active Substance: INSULIN LISPRO
  8. POT CL [Concomitant]
  9. LETAIRIS [Suspect]
     Active Substance: AMBRISENTAN
     Indication: PULMONARY ARTERIAL HYPERTENSION
     Route: 048
     Dates: start: 20070806
  10. COUMADIN [Concomitant]
     Active Substance: WARFARIN SODIUM

REACTIONS (1)
  - Urticaria [Unknown]
